FAERS Safety Report 9402709 (Version 1)
Quarter: 2013Q3

REPORT INFORMATION
  Report Type: Spontaneous
  Country: DK (occurrence: FR)
  Receive Date: 20130716
  Receipt Date: 20130716
  Transmission Date: 20140515
  Serious: Yes (Hospitalization)
  Sender: FDA-Public Use
  Company Number: FR-FRI-1000046712

PATIENT
  Age: 39 Year
  Sex: Female

DRUGS (5)
  1. ESCITALOPRAM [Suspect]
     Dosage: 15 MG
     Route: 048
     Dates: start: 2010, end: 20121012
  2. REMICADE [Suspect]
     Route: 042
     Dates: start: 201204, end: 20120814
  3. INEXIUM [Suspect]
     Dosage: 40 TO 80 MG
     Route: 048
     Dates: start: 201208, end: 20121012
  4. LYRICA [Suspect]
     Dosage: 150 MG
     Route: 048
     Dates: start: 20120812, end: 20121012
  5. ADEPAL [Concomitant]

REACTIONS (1)
  - Hepatitis [Recovered/Resolved]
